FAERS Safety Report 5369990-7 (Version None)
Quarter: 2007Q2

REPORT INFORMATION
  Report Type: 
  Country: None (occurrence: None)
  Receive Date: 20070626
  Receipt Date: 20070621
  Transmission Date: 20071010
  Serious: Yes (Life-Threatening, Other)
  Sender: FDA-Public Use
  Company Number: PHEH2007US04658

PATIENT
  Sex: Female
  Weight: 43.083 kg

DRUGS (2)
  1. INSULIN [Concomitant]
     Indication: DIABETES MELLITUS
  2. LAMISIL [Suspect]
     Indication: ONYCHOMYCOSIS
     Dosage: 250 MG, QD
     Route: 048
     Dates: start: 20070301, end: 20070504

REACTIONS (10)
  - AGEUSIA [None]
  - APHTHOUS STOMATITIS [None]
  - ASTHENIA [None]
  - DIABETIC COMPLICATION [None]
  - DYSGEUSIA [None]
  - GASTROINTESTINAL TUBE INSERTION [None]
  - GINGIVAL SWELLING [None]
  - MALAISE [None]
  - ORAL INTAKE REDUCED [None]
  - WEIGHT DECREASED [None]
